FAERS Safety Report 4990845-1 (Version None)
Quarter: 2006Q2

REPORT INFORMATION
  Report Type: 
  Country: None (occurrence: None)
  Receive Date: 20060428
  Receipt Date: 20060421
  Transmission Date: 20061013
  Serious: Yes (Hospitalization, Other)
  Sender: FDA-Public Use
  Company Number: GXKR2006CA02245

PATIENT
  Age: 84 Year
  Sex: Male

DRUGS (6)
  1. CIPROFLOXACIN [Suspect]
     Indication: URINARY TRACT INFECTION
     Dosage: 1000 MG, ORAL
     Route: 048
     Dates: start: 19930429, end: 19930506
  2. PROSCAR [Suspect]
     Indication: HYPERTENSION
     Dosage: 5 MG, ORAL
     Route: 048
  3. SINEMET CR [Suspect]
     Indication: PARKINSON'S DISEASE
     Dosage: 3 DF, ORAL
     Route: 048
  4. COGENTIN [Concomitant]
  5. PRODIEM (PSYLLIUM HYDROPHILIC MUCILLOID, SENNA, SENNA ALEXANDRINA) [Concomitant]
  6. SENNA [Concomitant]

REACTIONS (9)
  - ANAEMIA [None]
  - BLOOD CREATININE INCREASED [None]
  - BLOOD LACTATE DEHYDROGENASE INCREASED [None]
  - COAGULOPATHY [None]
  - HAEMATURIA [None]
  - HYPERBILIRUBINAEMIA [None]
  - PURPURA [None]
  - TACHYCARDIA [None]
  - THROMBOCYTOPENIA [None]
